FAERS Safety Report 4432560-9 (Version None)
Quarter: 2004Q3

REPORT INFORMATION
  Report Type: 
  Country: None (occurrence: None)
  Receive Date: 20040817
  Receipt Date: 20040805
  Transmission Date: 20050211
  Serious: Yes (Other)
  Sender: FDA-Public Use
  Company Number: 200410256BBE

PATIENT
  Sex: Male

DRUGS (8)
  1. KOATE [Suspect]
     Indication: FACTOR VIII DEFICIENCY
     Dosage: INTRAVENOUS
     Route: 042
     Dates: start: 19860101, end: 19870101
  2. HEMOFIL [Suspect]
     Indication: FACTOR VIII DEFICIENCY
     Dates: start: 19860101, end: 19870101
  3. HEMOFIL [Suspect]
     Indication: FACTOR VIII DEFICIENCY
     Dates: start: 19860101
  4. ALPHA PROFILATE (FACTOR VIII (ANTIHAEMOPHILIC FACTOR)) [Suspect]
     Indication: FACTOR VIII DEFICIENCY
     Dates: start: 19820101, end: 19850101
  5. CRYOPRECIPITATED AHF [Suspect]
     Dates: start: 19860101, end: 19870101
  6. CRYOPRECIPITATED AHF [Suspect]
     Dates: start: 19840101
  7. WHOLE BLOOD (BLOOD, WHOLE) [Suspect]
     Dates: start: 19910101
  8. WHOLE BLOOD (BLOOD, WHOLE) [Suspect]
     Dates: start: 19930101

REACTIONS (1)
  - HEPATITIS C VIRUS [None]
